FAERS Safety Report 19164259 (Version 1)
Quarter: 2021Q2

REPORT INFORMATION
  Report Type: Other
  Country: US (occurrence: US)
  Receive Date: 20210421
  Receipt Date: 20210421
  Transmission Date: 20210717
  Serious: Yes (Other)
  Sender: FDA-Public Use
  Company Number: US-ALKERMES INC.-ALK-2020-005312

PATIENT
  Age: 29 Year
  Sex: Male
  Weight: 78.75 kg

DRUGS (1)
  1. VIVITROL [Suspect]
     Active Substance: NALTREXONE
     Indication: DRUG USE DISORDER
     Dosage: 380 MILLIGRAM, QMO
     Route: 030

REACTIONS (4)
  - Muscle tightness [Unknown]
  - Dyspnoea [Unknown]
  - Myalgia [Unknown]
  - Palpitations [Unknown]

NARRATIVE: CASE EVENT DATE: 20200717
